FAERS Safety Report 5349894-6 (Version None)
Quarter: 2007Q2

REPORT INFORMATION
  Report Type: 
  Country: None (occurrence: None)
  Receive Date: 20070607
  Receipt Date: 20070526
  Transmission Date: 20071010
  Serious: Yes (Hospitalization, Other)
  Sender: FDA-Public Use
  Company Number: US-PFIZER INC-2007008677

PATIENT
  Sex: Female

DRUGS (9)
  1. SUTENT [Suspect]
     Indication: OVARIAN CANCER
     Dates: start: 20060927, end: 20070127
  2. ACETYLSALICYLIC ACID SRT [Concomitant]
  3. PROCARDIA [Concomitant]
  4. ERYTHROMYCIN [Concomitant]
  5. SKELAXIN [Concomitant]
  6. DURAGESIC-100 [Concomitant]
     Route: 062
  7. OXYCODONE HCL [Concomitant]
  8. PLAVIX [Concomitant]
  9. FOSAMAX [Concomitant]

REACTIONS (5)
  - GASTROINTESTINAL FISTULA [None]
  - GASTROINTESTINAL PERFORATION [None]
  - RECTAL HAEMORRHAGE [None]
  - VOMITING [None]
  - WOUND [None]
